FAERS Safety Report 15028441 (Version 1)
Quarter: 2018Q2

REPORT INFORMATION
  Report Type: Spontaneous
  Country: US (occurrence: US)
  Receive Date: 20180526
  Receipt Date: 20180526
  Transmission Date: 20180711
  Serious: No
  Sender: FDA-Public Use
  Company Number: None

PATIENT
  Age: 43 Year
  Sex: Female

DRUGS (1)
  1. LEUPROLIDE INJ 1MG/0.2 [Suspect]
     Active Substance: LEUPROLIDE

REACTIONS (3)
  - Drug ineffective [None]
  - Migraine [None]
  - Headache [None]

NARRATIVE: CASE EVENT DATE: 20180525
